FAERS Safety Report 9278426 (Version 1)
Quarter: 2013Q2

REPORT INFORMATION
  Report Type: Spontaneous
  Country: US (occurrence: None)
  Receive Date: 20130506
  Receipt Date: 20130506
  Transmission Date: 20140414
  Serious: Yes (Disabling)
  Sender: FDA-Public Use
  Company Number: None

PATIENT
  Sex: Male
  Weight: 79.38 kg

DRUGS (1)
  1. PROPECIA 1 MG MERCK [Suspect]
     Indication: ANDROGENETIC ALOPECIA
     Dates: start: 20040901, end: 20101001

REACTIONS (5)
  - Erectile dysfunction [None]
  - Genital hypoaesthesia [None]
  - Loss of libido [None]
  - Insomnia [None]
  - Anxiety [None]
